FAERS Safety Report 4774397-7 (Version None)
Quarter: 2005Q3

REPORT INFORMATION
  Report Type: 
  Country: None (occurrence: None)
  Receive Date: 20050919
  Receipt Date: 20050511
  Transmission Date: 20060218
  Serious: Yes (Other)
  Sender: FDA-Public Use
  Company Number: HQWYE760917MAY05

PATIENT
  Age: 73 Year
  Sex: Female
  Weight: 56.75 kg

DRUGS (8)
  1. ADVIL [Suspect]
     Indication: ARTHRALGIA
     Dosage: 1 CAPSULE 2X PER 1 DAY ORAL
     Route: 048
     Dates: start: 20031001, end: 20050511
  2. ADVIL [Suspect]
     Indication: HEADACHE
     Dosage: 1 CAPSULE 2X PER 1 DAY ORAL
     Route: 048
     Dates: start: 20031001, end: 20050511
  3. VITAMIN E [Concomitant]
  4. VITAMIN B6 [Concomitant]
  5. CALCIUM GLUCONATE [Concomitant]
  6. MULTIVITAMINS (ASCORBIC ACID/ERGOCALCIFEROL/FOLIC ACID/NICOTINAMIDE/PA [Concomitant]
  7. TYLENOL (PARACETAMOL) [Concomitant]
  8. PAXIL [Concomitant]

REACTIONS (4)
  - POLLAKIURIA [None]
  - PRURITUS GENITAL [None]
  - SOMNOLENCE [None]
  - SWELLING FACE [None]
